FAERS Safety Report 8774593 (Version 2)
Quarter: 2013Q1

REPORT INFORMATION
  Report Type: Report from Study
  Country: US (occurrence: US)
  Receive Date: 20120907
  Receipt Date: 20130201
  Transmission Date: 20140127
  Serious: Yes (Death, Life-Threatening, Hospitalization)
  Sender: FDA-Public Use
  Company Number: US-BIOGENIDEC-2012BI032531

PATIENT
  Age: 42 Year
  Sex: Female

DRUGS (9)
  1. TYSABRI [Suspect]
     Indication: MULTIPLE SCLEROSIS
     Route: 042
     Dates: start: 20070228, end: 20120809
  2. BOTOX [Concomitant]
  3. COREG [Concomitant]
     Route: 048
  4. CYMBALTA [Concomitant]
     Route: 048
  5. LEVAQUIN [Concomitant]
     Route: 048
     Dates: start: 20120517
  6. OXYBUTYNIN CHLORIDE [Concomitant]
     Route: 048
     Dates: start: 20120625
  7. TIZANIDINE HCL [Concomitant]
     Route: 048
  8. TRIVORA [Concomitant]
     Route: 048
     Dates: start: 20120712
  9. VESICARE [Concomitant]
     Route: 048
     Dates: start: 20120112

REACTIONS (3)
  - Septic shock [Fatal]
  - Pulmonary embolism [Fatal]
  - Deep vein thrombosis [Fatal]
